FAERS Safety Report 24790331 (Version 1)
Quarter: 2024Q4

REPORT INFORMATION
  Report Type: Spontaneous
  Country: FR (occurrence: FR)
  Receive Date: 20241230
  Receipt Date: 20241230
  Transmission Date: 20250115
  Serious: Yes (Hospitalization)
  Sender: B BRAUN
  Company Number: FR-B.Braun Medical Inc.-2168038

PATIENT
  Age: 34 Year
  Sex: Female
  Weight: 68 kg

DRUGS (12)
  1. ACETAMINOPHEN [Suspect]
     Active Substance: ACETAMINOPHEN
     Indication: Pain
     Dates: start: 20241203
  2. CEFAZOLIN SODIUM [Suspect]
     Active Substance: CEFAZOLIN SODIUM
  3. MORPHINE [Suspect]
     Active Substance: MORPHINE
  4. DROPERIDOL [Suspect]
     Active Substance: DROPERIDOL
  5. CIMETIDINE [Suspect]
     Active Substance: CIMETIDINE
  6. SULPROSTONE [Suspect]
     Active Substance: SULPROSTONE
  7. NOREPINEPHRINE [Suspect]
     Active Substance: NOREPINEPHRINE\NOREPINEPHRINE BITARTRATE
  8. KETOPROFEN [Suspect]
     Active Substance: KETOPROFEN
  9. CARBETOCIN [Suspect]
     Active Substance: CARBETOCIN
  10. CLOTTAFACT [Suspect]
     Active Substance: FIBRINOGEN HUMAN
  11. TRANEXAMIC ACID [Suspect]
     Active Substance: TRANEXAMIC ACID
  12. LIDOCAINE HYDROCHLORIDE [Suspect]
     Active Substance: LIDOCAINE HYDROCHLORIDE

REACTIONS (1)
  - Renal cortical necrosis [Not Recovered/Not Resolved]
